FAERS Safety Report 4931102-9 (Version None)
Quarter: 2006Q1

REPORT INFORMATION
  Report Type: 
  Country: None (occurrence: None)
  Receive Date: 20060302
  Receipt Date: 20050816
  Transmission Date: 20060701
  Serious: Yes (Other)
  Sender: FDA-Public Use
  Company Number: US-MERCK-0508USA02955

PATIENT
  Age: 61 Year
  Sex: Female
  Weight: 88 kg

DRUGS (7)
  1. VIOXX [Suspect]
     Indication: ARTHRALGIA
     Route: 048
     Dates: start: 20011220, end: 20020401
  2. VIOXX [Suspect]
     Route: 048
     Dates: start: 20011220, end: 20020401
  3. [THERAPY UNSPECIFIED] [Concomitant]
     Indication: DIABETES MELLITUS
     Route: 065
  4. FLEXERIL [Concomitant]
     Route: 065
  5. TYLENOL W/ CODEINE NO. 3 [Concomitant]
     Route: 065
  6. ALBUTEROL [Concomitant]
     Indication: ASTHMA
     Route: 065
  7. [THERAPY UNSPECIFIED] [Concomitant]
     Indication: ASTHMA
     Route: 065

REACTIONS (3)
  - ARTERIAL OCCLUSIVE DISEASE [None]
  - HEART VALVE STENOSIS [None]
  - MYOCARDIAL INFARCTION [None]
